FAERS Safety Report 15934474 (Version 1)
Quarter: 2019Q1

REPORT INFORMATION
  Report Type: Spontaneous
  Country: US (occurrence: US)
  Receive Date: 20190207
  Receipt Date: 20190207
  Transmission Date: 20190417
  Serious: Yes (Other)
  Sender: FDA-Public Use
  Company Number: US-BAUSCH-BL-2019-003520

PATIENT
  Age: 14 Year
  Sex: Female

DRUGS (11)
  1. CELONTIN [Suspect]
     Active Substance: METHSUXIMIDE
     Indication: PETIT MAL EPILEPSY
     Dosage: PRODUCT DISPENSED IN PHARMACY VIAL
     Route: 065
     Dates: start: 20170822, end: 201709
  2. FYCOMPA [Suspect]
     Active Substance: PERAMPANEL
     Indication: SEIZURE
     Dosage: 60 TABLETS, 2 AT NIGHT AT BEDTIME
     Route: 048
  3. MIDAZOLAM [Suspect]
     Active Substance: MIDAZOLAM HYDROCHLORIDE
     Indication: SEIZURE
     Dosage: DISPENSED IN 1ML VIAL. USES 2 VIALS, 4 BOTTLES
     Route: 045
     Dates: start: 2017
  4. CELONTIN [Suspect]
     Active Substance: METHSUXIMIDE
     Dosage: PRODUCT DISPENSED IN PHARMACY VIAL. DOSE WAS 2 CAPSULES TWICE A DAY
     Dates: start: 20171003
  5. DIASTAT ACUDIAL [Suspect]
     Active Substance: DIAZEPAM
     Indication: STATUS EPILEPTICUS
     Dosage: SYRINGES, ACUDIAL 20MG TWIN PACK, DIALED TO 15 MG RECTALLY
     Route: 054
  6. VIMPAT [Suspect]
     Active Substance: LACOSAMIDE
     Indication: SEIZURE
     Dosage: 2 BOTTLES OF 450ML
     Route: 065
  7. CELONTIN [Suspect]
     Active Substance: METHSUXIMIDE
     Dosage: PRODUCT DISPENSED IN PHARMACY VIAL. DOSE WAS INCREASED TO ONE IN THE MORNING AND 2 AT NIGHT
     Dates: start: 20170919, end: 201710
  8. BRIVIACT [Suspect]
     Active Substance: BRIVARACETAM
     Indication: SEIZURE
     Dosage: 150 TABLETS, 2 TABLETS BY MOUTH EVERY MORNING AND AT NIGHT
     Route: 048
  9. KLONOPIN [Concomitant]
     Active Substance: CLONAZEPAM
     Indication: SEIZURE
     Dosage: 0.5 MG TABLETS 3 TABLETS 3 TIMES A DAY
     Dates: start: 2012
  10. KLONOPIN [Concomitant]
     Active Substance: CLONAZEPAM
     Indication: SEIZURE
     Dosage: 0.5 MG TABLETS 3 TABLETS 3 TIMES A DAY
     Dates: start: 2012
  11. CELONTIN [Suspect]
     Active Substance: METHSUXIMIDE
     Dosage: PRODUCT DISPENSED IN PHARMACY VIAL. DOSE INCREASED TO 1 CAPSULE TWICE A DAY
     Dates: start: 20170905, end: 20170918

REACTIONS (1)
  - Drug ineffective [Not Recovered/Not Resolved]
